FAERS Safety Report 7467442-1 (Version None)
Quarter: 2011Q2

REPORT INFORMATION
  Report Type: 
  Country: None (occurrence: None)
  Receive Date: 20110509
  Receipt Date: 20101230
  Transmission Date: 20111010
  Serious: Yes (Other)
  Sender: FDA-Public Use
  Company Number: US-ALEXION-A201001532

PATIENT
  Sex: Male

DRUGS (7)
  1. SOLIRIS [Suspect]
     Dosage: 900 MG, Q2W
     Route: 042
     Dates: start: 20100922
  2. ASPIRIN [Concomitant]
     Dosage: UNK
     Route: 048
  3. SIMVASTATIN [Concomitant]
     Dosage: UNK
     Route: 048
  4. SOLIRIS [Suspect]
     Indication: PAROXYSMAL NOCTURNAL HAEMOGLOBINURIA
     Dosage: 600 MG, QW
     Route: 042
     Dates: start: 20100825
  5. PLAVIX [Concomitant]
     Dosage: UNK
     Route: 048
  6. TOPROL-XL [Concomitant]
     Dosage: UNK
     Route: 048
  7. FISH OIL [Concomitant]
     Dosage: UNK
     Route: 048

REACTIONS (4)
  - NASOPHARYNGITIS [None]
  - CORONARY ARTERIAL STENT INSERTION [None]
  - BLOOD LACTATE DEHYDROGENASE INCREASED [None]
  - HAEMOGLOBIN DECREASED [None]
